FAERS Safety Report 7157431-9 (Version None)
Quarter: 2010Q4

REPORT INFORMATION
  Report Type: 
  Country: None (occurrence: None)
  Receive Date: 20101214
  Receipt Date: 20101208
  Transmission Date: 20110411
  Serious: Yes (Hospitalization, Other)
  Sender: FDA-Public Use
  Company Number: A0891009A

PATIENT
  Age: 77 Year
  Sex: Male
  Weight: 155 kg

DRUGS (2)
  1. JALYN [Suspect]
     Route: 065
     Dates: start: 20100901
  2. ASPIRIN [Concomitant]

REACTIONS (2)
  - DEEP VEIN THROMBOSIS [None]
  - OEDEMA PERIPHERAL [None]
